FAERS Safety Report 22135687 (Version 3)
Quarter: 2024Q3

REPORT INFORMATION
  Report Type: Spontaneous
  Country: US (occurrence: US)
  Receive Date: 20230324
  Receipt Date: 20240709
  Transmission Date: 20241017
  Serious: Yes (Other)
  Sender: APOTEX
  Company Number: US-APOTEX-2023AP005306

PATIENT
  Age: 68 Year
  Sex: Female
  Weight: 58.5 kg

DRUGS (11)
  1. PAROXETINE [Suspect]
     Active Substance: PAROXETINE
     Indication: Anxiety
     Dosage: 1 DOSAGE FORM, QD
     Route: 048
     Dates: start: 2014
  2. PAROXETINE [Suspect]
     Active Substance: PAROXETINE
     Indication: Anxiety
     Dosage: UNK
     Route: 065
     Dates: start: 202210
  3. PAROXETINE [Suspect]
     Active Substance: PAROXETINE
     Indication: Anxiety
     Dosage: 1 DOSAGE FORM, QD
     Route: 048
     Dates: start: 20221212
  4. PAROXETINE [Suspect]
     Active Substance: PAROXETINE
     Dosage: 15 MILLIGRAM, QD (SHE CUT THE 20MG TABLET)
     Route: 048
     Dates: start: 202301, end: 2023
  5. PAROXETINE [Suspect]
     Active Substance: PAROXETINE
     Dosage: 10 MILLIGRAM, QD
     Route: 048
     Dates: start: 2023, end: 2023
  6. PAROXETINE [Suspect]
     Active Substance: PAROXETINE
     Dosage: 18 MILLIGRAM, QD
     Route: 065
     Dates: start: 202311, end: 202401
  7. PAROXETINE [Suspect]
     Active Substance: PAROXETINE
     Dosage: 20 MILLIGRAM, QD
     Route: 048
     Dates: start: 202401
  8. PAROXETINE [Suspect]
     Active Substance: PAROXETINE
     Indication: Anxiety
     Dosage: UNK
     Route: 065
     Dates: start: 2022
  9. PAROXETINE [Suspect]
     Active Substance: PAROXETINE
     Dosage: 0.5 DOSAGE FORM, QD
     Route: 048
     Dates: start: 2023
  10. CALCIUM [Concomitant]
     Active Substance: CALCIUM
     Indication: Product used for unknown indication
     Dosage: UNK
     Route: 065
  11. MVI [ASCORBIC ACID;DEXPANTHENOL;ERGOCALCIFEROL;NICOTINAMIDE;PYRIDOXINE [Concomitant]
     Indication: Product used for unknown indication
     Dosage: UNK
     Route: 065

REACTIONS (20)
  - Drug dependence [Not Recovered/Not Resolved]
  - Disorientation [Not Recovered/Not Resolved]
  - Fatigue [Not Recovered/Not Resolved]
  - Product substitution issue [Unknown]
  - Confusional state [Not Recovered/Not Resolved]
  - Brain fog [Not Recovered/Not Resolved]
  - Anxiety [Not Recovered/Not Resolved]
  - Headache [Not Recovered/Not Resolved]
  - Palpitations [Recovering/Resolving]
  - Heart rate increased [Recovering/Resolving]
  - Sleep disorder [Not Recovered/Not Resolved]
  - Product prescribing issue [Unknown]
  - Incorrect dose administered [Unknown]
  - Wrong technique in product usage process [Unknown]
  - Nightmare [Not Recovered/Not Resolved]
  - Somnolence [Not Recovered/Not Resolved]
  - Decreased appetite [Not Recovered/Not Resolved]
  - Insomnia [Not Recovered/Not Resolved]
  - Dizziness [Not Recovered/Not Resolved]
  - Asthenia [Not Recovered/Not Resolved]

NARRATIVE: CASE EVENT DATE: 20231101
